FAERS Safety Report 15144910 (Version 1)
Quarter: 2018Q3

REPORT INFORMATION
  Report Type: Spontaneous
  Country: US (occurrence: US)
  Receive Date: 20180713
  Receipt Date: 20180713
  Transmission Date: 20181010
  Serious: No
  Sender: FDA-Public Use
  Company Number: US-CHILTERN-US-2018-000023

PATIENT
  Sex: Male

DRUGS (1)
  1. RHOPRESSA [Suspect]
     Active Substance: NETARSUDIL MESYLATE
     Dosage: 1 GTT, ONCE
     Route: 047

REACTIONS (3)
  - Blindness transient [Recovered/Resolved]
  - Blindness unilateral [None]
  - Ocular hyperaemia [Unknown]
